FAERS Safety Report 8145323-8 (Version None)
Quarter: 2012Q1

REPORT INFORMATION
  Report Type: 
  Country: None (occurrence: None)
  Receive Date: 20120217
  Receipt Date: 20120210
  Transmission Date: 20120608
  Serious: Yes (Life-Threatening, Hospitalization)
  Sender: FDA-Public Use
  Company Number: JP-CELGENEUS-087-50794-11071266

PATIENT
  Sex: Female
  Weight: 56 kg

DRUGS (14)
  1. VIDAZA [Suspect]
     Dosage: 75 MILLIGRAM/SQ. METER
     Route: 041
     Dates: start: 20110513, end: 20110519
  2. PLATELETS [Concomitant]
     Indication: PLATELET COUNT
     Route: 065
  3. PIPERACILLIN AND TAZOBACTAM [Concomitant]
     Dosage: 2 GRAM
     Route: 041
     Dates: start: 20110528, end: 20110606
  4. CYCLOSPORINE [Concomitant]
     Route: 065
  5. MANNITOL [Concomitant]
     Dosage: 2 UNITS
     Route: 065
  6. VIDAZA [Suspect]
     Dosage: 75 MILLIGRAM/SQ. METER
     Route: 041
     Dates: start: 20110615, end: 20110621
  7. CEFAZOLIN SODIUM [Concomitant]
     Dosage: 3 GRAM
     Route: 048
     Dates: start: 20110513
  8. CEFEPIME DIHYDROCHLORIDE HYDRATE [Concomitant]
     Dosage: 2 GRAM
     Route: 041
     Dates: start: 20110524, end: 20110527
  9. MUCOSTA [Concomitant]
     Dosage: 300 MILLIGRAM
     Route: 048
     Dates: start: 20110513
  10. AMIKACIN SULFATE [Concomitant]
     Dosage: 200 MILLIGRAM
     Route: 041
     Dates: start: 20110528, end: 20110606
  11. AMLODIPINE [Concomitant]
     Dosage: 5 MILLIGRAM
     Route: 048
     Dates: start: 20110513
  12. EBASTINE [Concomitant]
     Dosage: 10 MILLIGRAM
     Route: 048
     Dates: start: 20110513
  13. AZULOXA [Concomitant]
     Dosage: 2 DF
     Route: 048
     Dates: start: 20110613
  14. FAMOTIDINE [Concomitant]
     Dosage: 20 MILLIGRAM
     Route: 048
     Dates: start: 20110613

REACTIONS (3)
  - PYREXIA [None]
  - DUODENAL ULCER HAEMORRHAGE [None]
  - HEPATIC ENZYME INCREASED [None]
